FAERS Safety Report 15356101 (Version 1)
Quarter: 2018Q3

REPORT INFORMATION
  Report Type: Spontaneous
  Country: US (occurrence: US)
  Receive Date: 20180906
  Receipt Date: 20180906
  Transmission Date: 20181010
  Serious: Yes (Other)
  Sender: FDA-Public Use
  Company Number: US-PFIZER INC-2018356483

PATIENT
  Age: 60 Year
  Sex: Female

DRUGS (2)
  1. LYRICA [Suspect]
     Active Substance: PREGABALIN
     Dosage: 50 MG, 1X/DAY (QHS)
     Route: 048
  2. DIFLUCAN [Suspect]
     Active Substance: FLUCONAZOLE
     Indication: ORAL CANDIDIASIS
     Dosage: 150 MG, 1X/DAY (50 MG, PO,ONCE)
     Route: 048

REACTIONS (23)
  - Acute sinusitis [Unknown]
  - Gout [Unknown]
  - Diabetic nephropathy [Unknown]
  - Pain in extremity [Unknown]
  - Spinal osteoarthritis [Unknown]
  - Polycythaemia [Unknown]
  - Depression [Unknown]
  - Skin candida [Unknown]
  - Atrophic vulvovaginitis [Unknown]
  - Chronic obstructive pulmonary disease [Unknown]
  - Tobacco abuse [Unknown]
  - Uterine leiomyoma [Unknown]
  - Colon cancer [Unknown]
  - Bursitis [Unknown]
  - Intervertebral disc disorder [Unknown]
  - Muscle spasms [Unknown]
  - Hepatic steatosis [Unknown]
  - Diabetes mellitus [Unknown]
  - Hyperlipidaemia [Unknown]
  - Obesity [Unknown]
  - Vitamin D deficiency [Unknown]
  - Rhinitis allergic [Unknown]
  - Restless legs syndrome [Unknown]
